FAERS Safety Report 10414987 (Version 1)
Quarter: 2014Q2

REPORT INFORMATION
  Report Type: Spontaneous
  Country: US (occurrence: None)
  Receive Date: 20140604
  Receipt Date: 20140604
  Transmission Date: 20141212
  Serious: No
  Sender: FDA-Public Use
  Company Number: 163-POMAL-14032786

PATIENT
  Age: 83 Year
  Sex: Female
  Weight: 70.3 kg

DRUGS (9)
  1. POMALYST (POMALIDOMIDE) (CAPSULES) [Suspect]
     Indication: PLASMA CELL MYELOMA
     Dosage: 21 IN 21 D
     Route: 048
     Dates: start: 20131205
  2. PREDNISONE [Concomitant]
  3. AMBIEN (ZOLPIDEM TARTRATE) [Concomitant]
  4. NORVASC (AMLODIPINE BESILATE) [Concomitant]
  5. NEXIUM (ESOMEPRAZOLE) [Concomitant]
  6. METOPROLOL [Concomitant]
  7. ACYCLOVIR (ACICLOVIR) [Concomitant]
  8. CERALYTE (ORAL REHYDRATION SALT FORMULATIONS) [Concomitant]
  9. ASPIRIN (ACETYLSALICYLCID ACID) [Concomitant]

REACTIONS (1)
  - Laboratory test abnormal [None]
